FAERS Safety Report 7148814-1 (Version None)
Quarter: 2010Q4

REPORT INFORMATION
  Report Type: 
  Country: None (occurrence: None)
  Receive Date: 20101209
  Receipt Date: 20101129
  Transmission Date: 20110411
  Serious: Yes (Other)
  Sender: FDA-Public Use
  Company Number: PHHY2010DE42877

PATIENT
  Age: 54 Year
  Sex: Female
  Weight: 55 kg

DRUGS (5)
  1. TEGRETOL [Suspect]
     Indication: GRAND MAL CONVULSION
     Dosage: 1000 MG, QD
     Route: 048
     Dates: start: 20091118, end: 20100622
  2. TEGRETOL [Suspect]
     Dosage: 800 MG, QD
     Route: 048
     Dates: start: 20100622, end: 20100820
  3. TRUXAL [Concomitant]
     Indication: AGITATION
     Dosage: 60 MG, QD
     Dates: start: 20100521, end: 20100623
  4. MACROGOL [Concomitant]
     Dosage: 2 DF, QD
     Dates: start: 20090416
  5. CALCIUM D3 [Concomitant]

REACTIONS (6)
  - ANTICONVULSANT DRUG LEVEL INCREASED [None]
  - COLD SWEAT [None]
  - DRUG TOXICITY [None]
  - FLUID INTAKE REDUCED [None]
  - GAIT DISTURBANCE [None]
  - SOMNOLENCE [None]
